FAERS Safety Report 7070945-5 (Version None)
Quarter: 2010Q4

REPORT INFORMATION
  Report Type: 
  Country: None (occurrence: None)
  Receive Date: 20101029
  Receipt Date: 20101022
  Transmission Date: 20110411
  Serious: Yes (Other)
  Sender: FDA-Public Use
  Company Number: PHHY2010BR72106

PATIENT
  Sex: Female

DRUGS (3)
  1. ENABLEX [Suspect]
     Indication: URINARY INCONTINENCE
     Dosage: 7.5 MG DAILY
     Route: 048
  2. SIFROL [Suspect]
     Dosage: 0.5 MG
  3. SITROMIL [Suspect]

REACTIONS (16)
  - ABDOMINAL PAIN [None]
  - AGEUSIA [None]
  - CHILLS [None]
  - HEADACHE [None]
  - INSOMNIA [None]
  - MOUTH INJURY [None]
  - PAIN [None]
  - PERIODIC LIMB MOVEMENT DISORDER [None]
  - POLLAKIURIA [None]
  - PYREXIA [None]
  - RENAL PAIN [None]
  - RHINITIS [None]
  - SWELLING [None]
  - TREMOR [None]
  - URINE COLOUR ABNORMAL [None]
  - WEIGHT INCREASED [None]
